FAERS Safety Report 21994912 (Version 2)
Quarter: 2023Q1

REPORT INFORMATION
  Report Type: Report from Study
  Country: US (occurrence: US)
  Receive Date: 20230215
  Receipt Date: 20230223
  Transmission Date: 20230417
  Serious: Yes (Death)
  Sender: FDA-Public Use
  Company Number: US-PARATEK PHARMACEUTICALS, INC.-2023PTK00051

PATIENT
  Age: 61 Year
  Sex: Male

DRUGS (2)
  1. NUZYRA [Suspect]
     Active Substance: OMADACYCLINE
     Indication: Mycobacterial infection
     Dosage: 300 MG, 1X/DAY
     Route: 048
     Dates: start: 20220912, end: 20230201
  2. AMANTADINE [Concomitant]
     Active Substance: AMANTADINE

REACTIONS (2)
  - Death [Fatal]
  - Off label use [Recovered/Resolved]

NARRATIVE: CASE EVENT DATE: 20220912
